FAERS Safety Report 5871044-8 (Version None)
Quarter: 2008Q3

REPORT INFORMATION
  Report Type: 
  Country: None (occurrence: None)
  Receive Date: 20080904
  Receipt Date: 20080826
  Transmission Date: 20090109
  Serious: Yes (Life-Threatening, Other)
  Sender: FDA-Public Use
  Company Number: NL-BAXTER-2008BH009158

PATIENT
  Age: 67 Year
  Sex: Male

DRUGS (1)
  1. LIDOCAINE HYDROCHLORIDE [Suspect]
     Indication: ARTHRALGIA
     Route: 014

REACTIONS (4)
  - CARDIO-RESPIRATORY ARREST [None]
  - DRUG TOXICITY [None]
  - EPILEPSY [None]
  - URTICARIA [None]
